FAERS Safety Report 23038450 (Version 3)
Quarter: 2023Q4

REPORT INFORMATION
  Report Type: Report from Study
  Country: BR (occurrence: BR)
  Receive Date: 20231006
  Receipt Date: 20231117
  Transmission Date: 20240110
  Serious: Yes (Other)
  Sender: FDA-Public Use
  Company Number: BR-MYLANLABS-2023M1104954

PATIENT
  Sex: Female
  Weight: 69 kg

DRUGS (2)
  1. XALATAN [Suspect]
     Active Substance: LATANOPROST
     Indication: Glaucoma
     Dosage: 1 GTT DROPS, QD ( 1 DROP IN EACH EYE AT NIGHT)
     Route: 047
  2. XALATAN [Suspect]
     Active Substance: LATANOPROST
     Dosage: 1 GTT DROPS, QD ( 1 DROP IN EACH EYE AT NIGHT)
     Route: 047

REACTIONS (14)
  - Thrombosis [Recovering/Resolving]
  - Thermal burns of eye [Not Recovered/Not Resolved]
  - Peripheral vascular disorder [Unknown]
  - Peripheral swelling [Recovering/Resolving]
  - Labyrinthitis [Unknown]
  - Pain [Recovering/Resolving]
  - Pain in extremity [Unknown]
  - Tachycardia [Unknown]
  - Hypertension [Recovered/Resolved]
  - Oedema [Unknown]
  - Vascular pain [Unknown]
  - Chest discomfort [Not Recovered/Not Resolved]
  - Headache [Not Recovered/Not Resolved]
  - Dizziness [Unknown]

NARRATIVE: CASE EVENT DATE: 20200101
